FAERS Safety Report 8862424 (Version 1)
Quarter: 2012Q4

REPORT INFORMATION
  Report Type: 
  Country: DE (occurrence: DE)
  Receive Date: 20121026
  Receipt Date: 20121026
  Transmission Date: 20130627
  Serious: Yes (Other)
  Sender: FDA-Public Use
  Company Number: PHHY2012DE095698

PATIENT
  Sex: Female

DRUGS (1)
  1. ZOMETA [Suspect]
     Indication: BREAST CANCER
     Dosage: Half yearly
     Route: 042
     Dates: start: 2011

REACTIONS (3)
  - Foot fracture [Unknown]
  - Stress fracture [Unknown]
  - Osteomyelitis [Unknown]
